FAERS Safety Report 13140803 (Version 2)
Quarter: 2017Q1

REPORT INFORMATION
  Report Type: Spontaneous
  Country: US (occurrence: US)
  Receive Date: 20170123
  Receipt Date: 20170222
  Transmission Date: 20170428
  Serious: No
  Sender: FDA-Public Use
  Company Number: US-ASTRAZENECA-2017SE05750

PATIENT
  Age: 20271 Day
  Sex: Female
  Weight: 65.8 kg

DRUGS (2)
  1. PULMICORT FLEXHALER [Suspect]
     Active Substance: BUDESONIDE
     Dosage: 180MCG, TWO PUFFS TWICE A DAY
     Route: 055
     Dates: start: 20170113, end: 20170117
  2. PREDNISONE. [Concomitant]
     Active Substance: PREDNISONE
     Dates: start: 20170113

REACTIONS (4)
  - Device issue [Unknown]
  - Malaise [Unknown]
  - Dyspnoea [Unknown]
  - Circumstance or information capable of leading to medication error [Unknown]

NARRATIVE: CASE EVENT DATE: 201701
